FAERS Safety Report 6310450-4 (Version None)
Quarter: 2009Q3

REPORT INFORMATION
  Report Type: 
  Country: None (occurrence: None)
  Receive Date: 20090814
  Receipt Date: 20090804
  Transmission Date: 20100115
  Serious: Yes (Death, Other)
  Sender: FDA-Public Use
  Company Number: IL-PFIZER INC-2009250734

PATIENT
  Age: 78 Year

DRUGS (2)
  1. AROMASIN [Suspect]
     Indication: BREAST CANCER
  2. AREDIA [Concomitant]

REACTIONS (1)
  - PORTAL VEIN THROMBOSIS [None]
